FAERS Safety Report 8295198-1 (Version None)
Quarter: 2012Q2

REPORT INFORMATION
  Report Type: 
  Country: None (occurrence: None)
  Receive Date: 20120418
  Receipt Date: 20120411
  Transmission Date: 20120825
  Serious: Yes (Hospitalization, Other)
  Sender: FDA-Public Use
  Company Number: JP-VERTEX PHARMACEUTICALS INC.-AE-2012-002913

PATIENT
  Age: 57 Year
  Sex: Male

DRUGS (9)
  1. RIBAVIRIN [Concomitant]
     Indication: HEPATITIS C
     Route: 048
     Dates: start: 20120217, end: 20120227
  2. ATELEC [Concomitant]
     Route: 048
  3. PEG-INTRON [Concomitant]
     Indication: HEPATITIS C
     Route: 051
     Dates: start: 20120217, end: 20120223
  4. TELAVIC (TELAPREVIR) [Suspect]
     Indication: HEPATITIS C
     Route: 048
     Dates: start: 20120217, end: 20120227
  5. CANDESARTAN CILEXETIL [Concomitant]
     Route: 048
  6. MUCOSTA [Concomitant]
     Route: 048
     Dates: start: 20120218
  7. PEG-INTRON [Concomitant]
     Route: 051
     Dates: start: 20120224, end: 20120227
  8. GLYCYRON [Concomitant]
     Route: 048
  9. LOXONIN [Concomitant]
     Route: 048
     Dates: start: 20120217, end: 20120217

REACTIONS (5)
  - RENAL IMPAIRMENT [None]
  - THROMBOCYTOPENIA [None]
  - DRUG ERUPTION [None]
  - ASTHENIA [None]
  - DECREASED APPETITE [None]
